FAERS Safety Report 4692049-9 (Version None)
Quarter: 2005Q2

REPORT INFORMATION
  Report Type: 
  Country: None (occurrence: None)
  Receive Date: 20050616
  Receipt Date: 20050616
  Transmission Date: 20051028
  Serious: No
  Sender: FDA-Public Use
  Company Number: None

PATIENT
  Age: 87 Year
  Sex: Male
  Weight: 79.3795 kg

DRUGS (4)
  1. COREG [Suspect]
     Indication: CARDIAC FAILURE CONGESTIVE
     Dosage: 6.25 QD ORAL
     Route: 048
     Dates: start: 20050531, end: 20050612
  2. WARFARIN SODIUM [Concomitant]
  3. IMDUR [Concomitant]
  4. FUROSEMIDE [Concomitant]

REACTIONS (1)
  - OEDEMA PERIPHERAL [None]
